FAERS Safety Report 25373952 (Version 4)
Quarter: 2025Q3

REPORT INFORMATION
  Report Type: Spontaneous
  Country: US (occurrence: US)
  Receive Date: 20250529
  Receipt Date: 20250821
  Transmission Date: 20251020
  Serious: No
  Sender: ROCHE
  Company Number: US-ROCHE-10000295884

PATIENT
  Age: 58 Year
  Sex: Male

DRUGS (3)
  1. HEMLIBRA [Suspect]
     Active Substance: EMICIZUMAB-KXWH
     Indication: Factor VIII deficiency
     Dosage: STRENGTH: 150MG/ML
     Route: 058
     Dates: start: 201702
  2. HEMLIBRA [Suspect]
     Active Substance: EMICIZUMAB-KXWH
     Indication: Factor VIII deficiency
     Dosage: STRENGTH: 105MG/0.7 ML
     Route: 058
     Dates: start: 201702
  3. HEMLIBRA [Suspect]
     Active Substance: EMICIZUMAB-KXWH
     Dosage: STRENGTH: 150MG/ML, 105MG/0.7ML
     Route: 058
     Dates: start: 20250326

REACTIONS (2)
  - Haemorrhage [Unknown]
  - Limb injury [Unknown]

NARRATIVE: CASE EVENT DATE: 20250705
